FAERS Safety Report 11047737 (Version 4)
Quarter: 2015Q3

REPORT INFORMATION
  Report Type: Report from Study
  Country: US (occurrence: US)
  Receive Date: 20150420
  Receipt Date: 20150821
  Transmission Date: 20151125
  Serious: Yes (Other)
  Sender: FDA-Public Use
  Company Number: US-AMGEN-USASL2015036298

PATIENT
  Age: 47 Year
  Sex: Female

DRUGS (2)
  1. ENBREL [Suspect]
     Active Substance: ETANERCEPT
     Indication: RHEUMATOID ARTHRITIS
     Dosage: 50 MG, QWK
     Route: 065
     Dates: start: 20150114
  2. METHOTREXATE [Concomitant]
     Active Substance: METHOTREXATE
     Dosage: UNK
     Dates: end: 2015

REACTIONS (9)
  - Pain [Unknown]
  - Rheumatoid arthritis [Not Recovered/Not Resolved]
  - Discomfort [Not Recovered/Not Resolved]
  - Mobility decreased [Unknown]
  - Inflammation [Unknown]
  - Dry mouth [Not Recovered/Not Resolved]
  - Pain in extremity [Unknown]
  - Fatigue [Not Recovered/Not Resolved]
  - Arthralgia [Unknown]

NARRATIVE: CASE EVENT DATE: 2015
